FAERS Safety Report 9366832 (Version 1)
Quarter: 2013Q2

REPORT INFORMATION
  Report Type: Spontaneous
  Country: FR (occurrence: FR)
  Receive Date: 20130625
  Receipt Date: 20130625
  Transmission Date: 20140414
  Serious: Yes (Hospitalization)
  Sender: FDA-Public Use
  Company Number: FR-TEVA-415025ISR

PATIENT
  Sex: Male

DRUGS (8)
  1. FUROSEMIDE TEVA 40MG [Suspect]
     Indication: FLUID RETENTION
     Dosage: 80 MILLIGRAM DAILY;
     Route: 048
     Dates: start: 20130312, end: 20130403
  2. FUROSEMIDE TEVA 40MG [Suspect]
     Indication: PULMONARY OEDEMA
     Dosage: 120 MILLIGRAM DAILY; 2 TABLETS IN THE MORNING AND 1 TABLET IN THE NOON
     Route: 048
     Dates: start: 20130404, end: 20130502
  3. FUROSEMIDE TEVA 40MG [Suspect]
     Dosage: 60 MILLIGRAM DAILY; 1 TABLET IN THE MORNING AND 1/2 TABLET IN THE NOON
     Route: 048
     Dates: start: 20130503, end: 20130608
  4. SPIRONOLACTONE TEVA 50 MG [Concomitant]
  5. PANTOPRAZOLE TEVA 40 MG [Concomitant]
  6. FUMAFER NOS (IRON) [Concomitant]
  7. DEXERYL NOS [Concomitant]
  8. BIOTIN [Concomitant]

REACTIONS (4)
  - Fatigue [Unknown]
  - Malaise [Unknown]
  - Somnolence [Unknown]
  - Local swelling [Unknown]
